FAERS Safety Report 5334316-1 (Version None)
Quarter: 2007Q2

REPORT INFORMATION
  Report Type: 
  Country: None (occurrence: None)
  Receive Date: 20070525
  Receipt Date: 20070516
  Transmission Date: 20071010
  Serious: Yes (Other)
  Sender: FDA-Public Use
  Company Number: PHNU2007DE00954

PATIENT
  Sex: Female

DRUGS (8)
  1. INSULIN [Concomitant]
     Dosage: 30-0-22 IU
  2. ALDACTONE [Concomitant]
  3. CO-DIOVAN [Concomitant]
  4. APONAL [Concomitant]
  5. TRILEPTAL [Suspect]
     Indication: DIABETIC NEUROPATHY
     Dosage: 300 MG, BID
     Route: 048
     Dates: start: 20060201, end: 20070131
  6. TRILEPTAL [Suspect]
     Dosage: 300 MG, TID
     Route: 048
     Dates: start: 20070201, end: 20070214
  7. TRILEPTAL [Suspect]
     Dosage: 300 MG, BID
     Route: 048
     Dates: start: 20070214
  8. TRILEPTAL [Suspect]
     Dosage: 600 MG/DAY
     Route: 048
     Dates: start: 20040101

REACTIONS (6)
  - ABDOMINAL PAIN [None]
  - BLOOD GLUCOSE FLUCTUATION [None]
  - BLOOD GLUCOSE INCREASED [None]
  - DIZZINESS [None]
  - FATIGUE [None]
  - NAUSEA [None]
